FAERS Safety Report 7455645-1 (Version None)
Quarter: 2011Q2

REPORT INFORMATION
  Report Type: 
  Country: None (occurrence: None)
  Receive Date: 20110503
  Receipt Date: 20110427
  Transmission Date: 20111010
  Serious: Yes (Disabling, Other)
  Sender: FDA-Public Use
  Company Number: IE-ABBOTT-11P-229-0720720-00

PATIENT
  Age: 41 Year
  Sex: Male

DRUGS (13)
  1. COPAXONE [Concomitant]
     Indication: PRODUCT USED FOR UNKNOWN INDICATION
     Dates: start: 20091019, end: 20100201
  2. NAUDICELLE [Concomitant]
     Indication: PRODUCT USED FOR UNKNOWN INDICATION
  3. EPILIM CHRONO TABLETS [Suspect]
     Route: 048
     Dates: start: 20091101, end: 20100101
  4. INTERFERON BETA NOS [Concomitant]
     Indication: PRODUCT USED FOR UNKNOWN INDICATION
  5. EPILIM CHRONO TABLETS [Suspect]
     Indication: EPILEPSY
     Route: 048
     Dates: start: 20100101
  6. TYSABRI [Concomitant]
     Indication: PRODUCT USED FOR UNKNOWN INDICATION
     Dates: start: 20100301
  7. IMMUNOSUPPRESSIVE AGENTS [Concomitant]
     Indication: PRODUCT USED FOR UNKNOWN INDICATION
     Dates: start: 20100301
  8. EPILIM CHRONO TABLETS [Suspect]
     Route: 048
     Dates: start: 20090818, end: 20091101
  9. VESITIRIM [Concomitant]
     Indication: PRODUCT USED FOR UNKNOWN INDICATION
  10. EPILIM CHRONO TABLETS [Suspect]
     Route: 048
     Dates: start: 20090814, end: 20090818
  11. LAMOTRIGINE [Concomitant]
     Indication: PRODUCT USED FOR UNKNOWN INDICATION
     Dates: start: 20100101
  12. ANTIEPILEPTICS [Concomitant]
     Indication: PRODUCT USED FOR UNKNOWN INDICATION
  13. LEVETIRACETAM [Concomitant]
     Indication: CONVULSION
     Dates: start: 20100101

REACTIONS (2)
  - CONVULSION [None]
  - MULTIPLE SCLEROSIS RELAPSE [None]
